FAERS Safety Report 6114906-9 (Version None)
Quarter: 2009Q1

REPORT INFORMATION
  Report Type: 
  Country: None (occurrence: None)
  Receive Date: 20090313
  Receipt Date: 20090304
  Transmission Date: 20090719
  Serious: Yes (Other)
  Sender: FDA-Public Use
  Company Number: PHEH2009US02273

PATIENT
  Sex: Female

DRUGS (1)
  1. RECLAST [Suspect]
     Indication: OSTEOPOROSIS
     Dosage: UNK
     Dates: start: 20080501

REACTIONS (4)
  - ACOUSTIC STIMULATION TESTS ABNORMAL [None]
  - CONDITION AGGRAVATED [None]
  - HEARING IMPAIRED [None]
  - OTOSCLEROSIS [None]
